FAERS Safety Report 12831738 (Version 1)
Quarter: 2016Q4

REPORT INFORMATION
  Report Type: Report from Study
  Country: US (occurrence: US)
  Receive Date: 20161010
  Receipt Date: 20161010
  Transmission Date: 20170207
  Serious: Yes (Hospitalization, Other)
  Sender: FDA-Public Use
  Company Number: US-ROCHE-1655344

PATIENT
  Age: 66 Year
  Sex: Female
  Weight: 76.67 kg

DRUGS (7)
  1. VELIPARIB [Suspect]
     Active Substance: VELIPARIB
     Dosage: ON DAYS 1-21.?REGIMEN 1
     Route: 048
     Dates: start: 201409, end: 201501
  2. VELIPARIB [Suspect]
     Active Substance: VELIPARIB
     Indication: OVARIAN EPITHELIAL CANCER
     Dosage: ON DAY 2-5 ?REGIMEN 2
     Route: 048
     Dates: start: 20140923
  3. PACLITAXEL. [Suspect]
     Active Substance: PACLITAXEL
     Dosage: OVER 3 HOURS.?REGIMEN 1
     Route: 042
     Dates: start: 201409, end: 201502
  4. CARBOPLATIN. [Suspect]
     Active Substance: CARBOPLATIN
     Dosage: OVER 30 MINUTES?REGIMEN 1
     Route: 042
     Dates: start: 201409, end: 201502
  5. BEVACIZUMAB [Suspect]
     Active Substance: BEVACIZUMAB
     Indication: OVARIAN EPITHELIAL CANCER
     Dosage: LAST DOSE PRIOR TO SAE ON 03/SEP/2015?15MG/KG IV OVER 30-90 MINS ON DAY 1
     Route: 042
     Dates: start: 20141030, end: 20150903
  6. CARBOPLATIN. [Suspect]
     Active Substance: CARBOPLATIN
     Indication: OVARIAN EPITHELIAL CANCER
     Dosage: AUC = 6 IV OVER 30 MINS ON DAY 1?REGIMEN 2
     Route: 042
     Dates: start: 20140923
  7. PACLITAXEL. [Suspect]
     Active Substance: PACLITAXEL
     Indication: OVARIAN EPITHELIAL CANCER
     Dosage: OVER 1 HR ON DAYS 1, 8, 15?REGIMEN 2
     Route: 042
     Dates: start: 20140923

REACTIONS (5)
  - Hypertension [Unknown]
  - Anaemia [Unknown]
  - White blood cell count decreased [Unknown]
  - Abdominal hernia repair [Recovered/Resolved]
  - Neutrophil count decreased [Unknown]

NARRATIVE: CASE EVENT DATE: 20150924
